FAERS Safety Report 8189986 (Version 3)
Quarter: 2012Q4

REPORT INFORMATION
  Report Type: 
  Country: FR (occurrence: FR)
  Receive Date: 20111019
  Receipt Date: 20121009
  Transmission Date: 20130627
  Serious: Yes (Life-Threatening)
  Sender: FDA-Public Use
  Company Number: FR-TEVA-305381ISR

PATIENT
  Age: 55 None
  Sex: Female

DRUGS (2)
  1. AZILECT [Suspect]
     Indication: PARKINSON^S DISEASE
     Dosage: 1 Milligram Daily;
     Route: 048
     Dates: start: 20090526
  2. REQUIP [Suspect]
     Indication: PARKINSON^S DISEASE
     Dosage: 8 Milligram Daily;
     Route: 048
     Dates: start: 20090911

REACTIONS (2)
  - Rectal haemorrhage [Recovered/Resolved with Sequelae]
  - Rectal adenocarcinoma [Not Recovered/Not Resolved]
